FAERS Safety Report 5053160-6 (Version None)
Quarter: 2006Q3

REPORT INFORMATION
  Report Type: 
  Country: None (occurrence: None)
  Receive Date: 20060712
  Receipt Date: 20060623
  Transmission Date: 20061208
  Serious: Yes (Hospitalization)
  Sender: FDA-Public Use
  Company Number: US200606005295

PATIENT
  Sex: Female

DRUGS (4)
  1. HUMALOG [Suspect]
     Dosage: 6 U, 3/D
     Dates: start: 20060401
  2. HUMALOG PEN [Concomitant]
  3. LANTUS [Concomitant]
  4. METFORMIN [Concomitant]

REACTIONS (4)
  - CARDIAC FAILURE [None]
  - MEDICAL DEVICE COMPLICATION [None]
  - MYOCARDIAL INFARCTION [None]
  - PHARMACEUTICAL PRODUCT COMPLAINT [None]
